FAERS Safety Report 23205463 (Version 2)
Quarter: 2024Q1

REPORT INFORMATION
  Report Type: Report from Study
  Country: US (occurrence: US)
  Receive Date: 20231120
  Receipt Date: 20240102
  Transmission Date: 20240410
  Serious: No
  Sender: FDA-Public Use
  Company Number: US-SA-SAC20231116000062

PATIENT
  Age: 47 Year
  Sex: Male

DRUGS (3)
  1. DUPILUMAB [Suspect]
     Active Substance: DUPILUMAB
     Indication: Illness
     Dosage: 400 MG, 1X
     Route: 058
     Dates: start: 20230825, end: 20230825
  2. DUPILUMAB [Suspect]
     Active Substance: DUPILUMAB
     Indication: Asthma
     Dosage: 200 MG, QOW
     Route: 058
     Dates: start: 20231026
  3. FASENRA [Concomitant]
     Active Substance: BENRALIZUMAB

REACTIONS (6)
  - Rhinorrhoea [Recovering/Resolving]
  - Productive cough [Recovering/Resolving]
  - Sinus congestion [Recovering/Resolving]
  - Dizziness [Recovered/Resolved]
  - Chest discomfort [Recovering/Resolving]
  - Sinus operation [Unknown]

NARRATIVE: CASE EVENT DATE: 20230101
